FAERS Safety Report 7468088-1 (Version None)
Quarter: 2011Q2

REPORT INFORMATION
  Report Type: 
  Country: None (occurrence: None)
  Receive Date: 20110509
  Receipt Date: 20110505
  Transmission Date: 20111010
  Serious: Yes (Death, Hospitalization, Other)
  Sender: FDA-Public Use
  Company Number: PHFR2011GB02927

PATIENT
  Sex: Male

DRUGS (4)
  1. ZOLEDRONIC ACID [Suspect]
     Indication: OSTEOPOROSIS
     Dosage: 5MG UNK
     Route: 042
     Dates: start: 20110117, end: 20110117
  2. PREDNISOLONE [Concomitant]
  3. INFLIXIMAB [Suspect]
     Indication: CROHN'S DISEASE
     Dosage: 300 MG, Q2MO
     Route: 042
     Dates: end: 20110110
  4. AZATHIOPRINE [Concomitant]
     Indication: CROHN'S DISEASE
     Dosage: UNK
     Route: 048

REACTIONS (3)
  - LEUKOPENIA [None]
  - HAEMOPHILUS BACTERAEMIA [None]
  - SEPTIC SHOCK [None]
